FAERS Safety Report 22020947 (Version 1)
Quarter: 2023Q1

REPORT INFORMATION
  Report Type: Spontaneous
  Country: US (occurrence: None)
  Receive Date: 20230217
  Receipt Date: 20230217
  Transmission Date: 20230418
  Serious: Yes (Hospitalization)
  Sender: FDA-Public Use
  Company Number: None

PATIENT
  Age: 69 Year
  Sex: Female

DRUGS (14)
  1. TASIGNA [Suspect]
     Active Substance: NILOTINIB
     Indication: Chronic myeloid leukaemia
     Dosage: FREQUENCY : TWICE A DAY;?
     Route: 048
  2. ARANESP [Concomitant]
     Active Substance: DARBEPOETIN ALFA
  3. ASPIRIN [Concomitant]
     Active Substance: ASPIRIN
  4. COREG [Concomitant]
     Active Substance: CARVEDILOL
  5. ENTRESTO [Concomitant]
     Active Substance: SACUBITRIL\VALSARTAN
  6. FAMOTIDINE [Concomitant]
     Active Substance: FAMOTIDINE
  7. FLUTICASONE [Concomitant]
     Active Substance: FLUTICASONE
  8. GUAIFENESIN [Concomitant]
     Active Substance: GUAIFENESIN
  9. HYDRALAZINE HCL [Concomitant]
     Active Substance: HYDRALAZINE HYDROCHLORIDE
  10. MULTIVITAMIN ADULT [Concomitant]
  11. NORVASC [Concomitant]
     Active Substance: AMLODIPINE BESYLATE
  12. PANTOPRAZOLE [Concomitant]
     Active Substance: PANTOPRAZOLE
  13. PEPCID [Concomitant]
     Active Substance: FAMOTIDINE
  14. RENVELA [Concomitant]
     Active Substance: SEVELAMER CARBONATE

REACTIONS (2)
  - Pulmonary oedema [None]
  - Therapy interrupted [None]
